FAERS Safety Report 4284775-0 (Version None)
Quarter: 2004Q1

REPORT INFORMATION
  Report Type: 
  Country: None (occurrence: None)
  Receive Date: 20040203
  Receipt Date: 20040120
  Transmission Date: 20041129
  Serious: Yes (Hospitalization)
  Sender: FDA-Public Use
  Company Number: 04-01-0149

PATIENT
  Sex: Female

DRUGS (1)
  1. FLUOXETINE [Suspect]
     Indication: POSTPARTUM DEPRESSION

REACTIONS (2)
  - BOTTLE FEEDING [None]
  - DRUG EXPOSURE DURING PREGNANCY [None]
